FAERS Safety Report 18573520 (Version 2)
Quarter: 2020Q4

REPORT INFORMATION
  Report Type: Spontaneous
  Country: US (occurrence: US)
  Receive Date: 20201203
  Receipt Date: 20201230
  Transmission Date: 20210114
  Serious: No
  Sender: FDA-Public Use
  Company Number: US-JNJFOC-20201138362

PATIENT
  Age: 71 Year
  Sex: Male
  Weight: 94.89 kg

DRUGS (1)
  1. MENS ROGAINE EXTRA STRENGTH [Suspect]
     Active Substance: MINOXIDIL
     Indication: ALOPECIA
     Dosage: DOSE: A CAPFUL (A CAP SIZE OF FOAM)?LAST ADMINISTRATION DATE: 15-NOV-2020
     Route: 061
     Dates: start: 202009, end: 202012

REACTIONS (5)
  - Application site haemorrhage [Recovered/Resolved]
  - Application site acne [Recovered/Resolved]
  - Application site ulcer [Recovered/Resolved]
  - Application site rash [Recovered/Resolved]
  - Overdose [Unknown]

NARRATIVE: CASE EVENT DATE: 202009
